FAERS Safety Report 21219736 (Version 2)
Quarter: 2022Q3

REPORT INFORMATION
  Report Type: Spontaneous
  Country: US (occurrence: US)
  Receive Date: 20220817
  Receipt Date: 20220829
  Transmission Date: 20221026
  Serious: Yes (Hospitalization, Other)
  Sender: FDA-Public Use
  Company Number: US-MLMSERVICE-20220801-3708562-1

PATIENT
  Age: 66 Year
  Sex: Male

DRUGS (1)
  1. LORAZEPAM [Suspect]
     Active Substance: LORAZEPAM
     Indication: Catatonia
     Dosage: 16 MILLIGRAM (16 MILLIGRAMS OF LORAZEPAM IN 24 HOURS)
     Route: 065

REACTIONS (1)
  - Catatonia [Recovered/Resolved]
